FAERS Safety Report 7762931-4 (Version None)
Quarter: 2011Q3

REPORT INFORMATION
  Report Type: 
  Country: None (occurrence: None)
  Receive Date: 20110920
  Receipt Date: 20110912
  Transmission Date: 20111222
  Serious: Yes (Other)
  Sender: FDA-Public Use
  Company Number: PHHY2011GB80980

PATIENT
  Sex: Female

DRUGS (3)
  1. ACETAMINOPHEN [Concomitant]
     Dosage: 1 DF, QID
  2. WINE [Interacting]
  3. ACETAMINOPHEN AND CODEINE PHOSPHATE [Suspect]
     Indication: MIGRAINE
     Dosage: 4 DF, QD (2 TABLETS IN THE MORNING AND 2 TABLETS IN THE EVENTING)
     Route: 048

REACTIONS (4)
  - SOMNOLENCE [None]
  - AGGRESSION [None]
  - ALCOHOL INTERACTION [None]
  - AMNESIA [None]
